FAERS Safety Report 6733019-6 (Version None)
Quarter: 2010Q2

REPORT INFORMATION
  Report Type: 
  Country: None (occurrence: None)
  Receive Date: 20100519
  Receipt Date: 20100515
  Transmission Date: 20101027
  Serious: Yes (Hospitalization)
  Sender: FDA-Public Use
  Company Number: US-JNJFOC-20100505505

PATIENT
  Sex: Female

DRUGS (4)
  1. CHILDREN'S MOTRIN [Suspect]
     Indication: ABDOMINAL PAIN UPPER
     Route: 065
  2. BENADRYL [Suspect]
     Indication: DRUG USE FOR UNKNOWN INDICATION
     Route: 065
  3. CHILDREN'S TYLENOL [Suspect]
     Route: 065
  4. CHILDREN'S TYLENOL [Suspect]
     Indication: ABDOMINAL PAIN UPPER
     Route: 065

REACTIONS (2)
  - ADVERSE EVENT [None]
  - PRODUCT QUALITY ISSUE [None]
